FAERS Safety Report 9405552 (Version 1)
Quarter: 2013Q3

REPORT INFORMATION
  Report Type: Spontaneous
  Country: US (occurrence: US)
  Receive Date: 20130717
  Receipt Date: 20130717
  Transmission Date: 20140515
  Serious: Yes (Other)
  Sender: FDA-Public Use
  Company Number: US-AMGEN-USASP2013049033

PATIENT
  Age: 10 Year
  Sex: Female

DRUGS (2)
  1. EPOGEN [Suspect]
     Indication: PRODUCT USED FOR UNKNOWN INDICATION
     Dosage: UNK
     Route: 065
  2. ARANESP [Suspect]
     Indication: RENAL FAILURE CHRONIC
     Dosage: 25 MUG, UNK
     Route: 042

REACTIONS (2)
  - Adverse drug reaction [Not Recovered/Not Resolved]
  - Rash maculo-papular [Not Recovered/Not Resolved]
